FAERS Safety Report 16613701 (Version 1)
Quarter: 2019Q3

REPORT INFORMATION
  Report Type: Spontaneous
  Country: US (occurrence: US)
  Receive Date: 20190722
  Receipt Date: 20190722
  Transmission Date: 20191004
  Serious: Yes (Other)
  Sender: FDA-Public Use
  Company Number: None

PATIENT
  Age: 24 Year
  Sex: Male
  Weight: 83.25 kg

DRUGS (2)
  1. PROTRIPTYLINE [Suspect]
     Active Substance: PROTRIPTYLINE
     Indication: DEPRESSION
     Dates: start: 20190301
  2. PROTRIPTYLINE [Suspect]
     Active Substance: PROTRIPTYLINE
     Indication: NEURALGIA
     Dates: start: 20190301

REACTIONS (1)
  - Anorgasmia [None]

NARRATIVE: CASE EVENT DATE: 20190301
